FAERS Safety Report 12415025 (Version 1)
Quarter: 2016Q2

REPORT INFORMATION
  Report Type: Report from Study
  Country: US (occurrence: US)
  Receive Date: 20160530
  Receipt Date: 20160530
  Transmission Date: 20160815
  Serious: Yes (Death, Other)
  Sender: FDA-Public Use
  Company Number: US-BRISTOL-MYERS SQUIBB COMPANY-BMS-2016-039628

PATIENT
  Sex: Female

DRUGS (8)
  1. PREDNISONE. [Concomitant]
     Active Substance: PREDNISONE
     Indication: TRANSPLANT
     Dosage: UNK
     Route: 065
     Dates: start: 20130306
  2. BELATACEPT [Suspect]
     Active Substance: BELATACEPT
     Indication: TRANSPLANT
     Dosage: 1000 MG, UNK
     Route: 065
     Dates: start: 20130306
  3. TACROLIMUS. [Concomitant]
     Active Substance: TACROLIMUS
     Indication: IMMUNOSUPPRESSION
     Dosage: UNK
     Route: 065
     Dates: start: 20130303
  4. METHYLPREDNISOLONE. [Concomitant]
     Active Substance: METHYLPREDNISOLONE
     Indication: TRANSPLANT
     Dosage: UNK
     Route: 065
     Dates: start: 20130306
  5. DECADRON [Concomitant]
     Active Substance: DEXAMETHASONE
     Indication: TRANSPLANT
     Dosage: UNK
     Route: 065
     Dates: start: 20130306
  6. MYCOPHENOLATE MOFETIL. [Concomitant]
     Active Substance: MYCOPHENOLATE MOFETIL
     Indication: TRANSPLANT
     Dosage: 2000 MG, UNK
     Route: 065
     Dates: start: 20130306
  7. MEDROL [Concomitant]
     Active Substance: METHYLPREDNISOLONE
     Indication: TRANSPLANT
     Dosage: UNK
     Route: 065
     Dates: start: 20130306
  8. ZENAPAX [Concomitant]
     Active Substance: DACLIZUMAB
     Indication: TRANSPLANT
     Dosage: UNK
     Route: 065
     Dates: start: 20130306, end: 20130309

REACTIONS (1)
  - Acute respiratory failure [Fatal]
